FAERS Safety Report 5339271-6 (Version None)
Quarter: 2007Q2

REPORT INFORMATION
  Report Type: 
  Country: None (occurrence: None)
  Receive Date: 20070530
  Receipt Date: 20070522
  Transmission Date: 20071010
  Serious: Yes (Other)
  Sender: FDA-Public Use
  Company Number: CA-AMGEN-KDL221399

PATIENT
  Sex: Male

DRUGS (2)
  1. ENBREL [Suspect]
     Indication: ANKYLOSING SPONDYLITIS
     Route: 058
     Dates: start: 20051101, end: 20061101
  2. OXYCONTIN [Concomitant]
     Dates: start: 20050101

REACTIONS (6)
  - ANKYLOSING SPONDYLITIS [None]
  - DEPRESSION [None]
  - LOCALISED INFECTION [None]
  - MEMORY IMPAIRMENT [None]
  - PERSONALITY DISORDER [None]
  - SUICIDAL IDEATION [None]
